FAERS Safety Report 17921536 (Version 2)
Quarter: 2021Q1

REPORT INFORMATION
  Report Type: Spontaneous
  Country: US (occurrence: US)
  Receive Date: 20200622
  Receipt Date: 20210113
  Transmission Date: 20210419
  Serious: Yes (Hospitalization, Other)
  Sender: FDA-Public Use
  Company Number: US-ASTRAZENECA-2020SE77592

PATIENT
  Age: 577 Month
  Sex: Female

DRUGS (89)
  1. NEXIUM [Suspect]
     Active Substance: ESOMEPRAZOLE MAGNESIUM
     Indication: GASTROOESOPHAGEAL REFLUX DISEASE
     Route: 048
     Dates: start: 200601, end: 201812
  2. PREVACID [Suspect]
     Active Substance: LANSOPRAZOLE
     Indication: GASTROOESOPHAGEAL REFLUX DISEASE
     Route: 065
     Dates: start: 2006, end: 2010
  3. SUMATRIPTAN. [Concomitant]
     Active Substance: SUMATRIPTAN
  4. TRIAMCINOLONE [Concomitant]
     Active Substance: TRIAMCINOLONE
  5. MUPIROCIN. [Concomitant]
     Active Substance: MUPIROCIN
  6. HYDROXYZINE PAMOATE. [Concomitant]
     Active Substance: HYDROXYZINE PAMOATE
  7. ZOLPIDEM [Concomitant]
     Active Substance: ZOLPIDEM TARTRATE
  8. MICARDIS [Concomitant]
     Active Substance: TELMISARTAN
  9. DOXYCYCLINE. [Concomitant]
     Active Substance: DOXYCYCLINE
  10. TUMS [Concomitant]
     Active Substance: CALCIUM CARBONATE
  11. IPRATROPIUM [Concomitant]
     Active Substance: IPRATROPIUM
  12. PRILOSEC [Suspect]
     Active Substance: OMEPRAZOLE MAGNESIUM
     Indication: GASTROOESOPHAGEAL REFLUX DISEASE
     Route: 048
     Dates: start: 200601, end: 201812
  13. PEPCID [Concomitant]
     Active Substance: FAMOTIDINE
  14. ROPINIROLE. [Concomitant]
     Active Substance: ROPINIROLE
  15. RANITIDINE. [Concomitant]
     Active Substance: RANITIDINE
  16. HYOSCYAMINE SULFATE. [Concomitant]
     Active Substance: HYOSCYAMINE SULFATE
  17. HIBICLENS [Concomitant]
     Active Substance: CHLORHEXIDINE GLUCONATE
  18. ANUCORT?HC [Concomitant]
     Active Substance: HYDROCORTISONE ACETATE
  19. NIZATIDINE. [Concomitant]
     Active Substance: NIZATIDINE
  20. NITROGLYCERIN. [Concomitant]
     Active Substance: NITROGLYCERIN
  21. AMITIZA [Concomitant]
     Active Substance: LUBIPROSTONE
  22. KETOCONAZOLE. [Concomitant]
     Active Substance: KETOCONAZOLE
  23. DOXYCYCLINE MONOHYDRATE [Concomitant]
     Active Substance: DOXYCYCLINE
  24. PHENTERMINE. [Concomitant]
     Active Substance: PHENTERMINE
  25. METOPROLOL SUCCINATE. [Concomitant]
     Active Substance: METOPROLOL SUCCINATE
  26. ACTOS [Concomitant]
     Active Substance: PIOGLITAZONE HYDROCHLORIDE
  27. AMOXICILLIN. [Concomitant]
     Active Substance: AMOXICILLIN
  28. FISH OIL [Concomitant]
     Active Substance: FISH OIL
  29. OMNIPAQUE [Concomitant]
     Active Substance: IOHEXOL
  30. LUNESTA [Concomitant]
     Active Substance: ESZOPICLONE
  31. ONDANSETRON HYDROCHLORIDE. [Concomitant]
     Active Substance: ONDANSETRON HYDROCHLORIDE
  32. ABILIFY [Concomitant]
     Active Substance: ARIPIPRAZOLE
  33. NITROFURANTOIN. [Concomitant]
     Active Substance: NITROFURANTOIN
  34. BUMEX [Concomitant]
     Active Substance: BUMETANIDE
  35. VANCOMYCIN [Concomitant]
     Active Substance: VANCOMYCIN
  36. ALBUTEROL. [Concomitant]
     Active Substance: ALBUTEROL
  37. NEXIUM [Suspect]
     Active Substance: ESOMEPRAZOLE MAGNESIUM
     Indication: GASTROOESOPHAGEAL REFLUX DISEASE
     Route: 048
     Dates: start: 2011, end: 2018
  38. PRILOSEC [Suspect]
     Active Substance: OMEPRAZOLE MAGNESIUM
     Indication: GASTROOESOPHAGEAL REFLUX DISEASE
     Route: 048
     Dates: start: 2006, end: 2010
  39. PREVACID [Suspect]
     Active Substance: LANSOPRAZOLE
     Indication: GASTROOESOPHAGEAL REFLUX DISEASE
     Route: 065
     Dates: start: 200601, end: 201812
  40. PREVACID 24 HR [Suspect]
     Active Substance: LANSOPRAZOLE
     Indication: GASTROOESOPHAGEAL REFLUX DISEASE
     Route: 065
     Dates: start: 2009, end: 2010
  41. ERYTHROMYCIN. [Concomitant]
     Active Substance: ERYTHROMYCIN
  42. MOVANTIK [Concomitant]
     Active Substance: NALOXEGOL OXALATE
  43. OXYCODONE [Concomitant]
     Active Substance: OXYCODONE
  44. ALPRAZOLAM. [Concomitant]
     Active Substance: ALPRAZOLAM
  45. CLOBETASOL PROP [Concomitant]
  46. SERTRALINE [Concomitant]
     Active Substance: SERTRALINE HYDROCHLORIDE
  47. PRAZOSIN. [Concomitant]
     Active Substance: PRAZOSIN
  48. TRAZODONE [Concomitant]
     Active Substance: TRAZODONE HYDROCHLORIDE
  49. CLINDAMYCIN. [Concomitant]
     Active Substance: CLINDAMYCIN
  50. CLONIDINE. [Concomitant]
     Active Substance: CLONIDINE
  51. OXYBUTYNIN. [Concomitant]
     Active Substance: OXYBUTYNIN CHLORIDE
  52. FLULAVAL QUADRIVALENT [Concomitant]
  53. NUPERCAINAL [Concomitant]
     Active Substance: DIBUCAINE
  54. HYDRALAZINE [Concomitant]
     Active Substance: HYDRALAZINE HYDROCHLORIDE
  55. BENADRYL [Concomitant]
     Active Substance: DIPHENHYDRAMINE HYDROCHLORIDE
  56. TAGAMET [Concomitant]
     Active Substance: CIMETIDINE
  57. AQUAPHOR [Concomitant]
     Active Substance: PETROLATUM
  58. BIPHEDRINE [Concomitant]
  59. CEPHALEXIN. [Concomitant]
     Active Substance: CEPHALEXIN
  60. LISINOPRIL. [Concomitant]
     Active Substance: LISINOPRIL
  61. PREDNISONE. [Concomitant]
     Active Substance: PREDNISONE
  62. CIPROFLOXACIN. [Concomitant]
     Active Substance: CIPROFLOXACIN
  63. DIAMOX SEQUELS [Concomitant]
     Active Substance: ACETAZOLAMIDE
  64. MAALOX ANTACID [Concomitant]
     Active Substance: ALUMINUM HYDROXIDE\DIMETHICONE\MAGNESIUM HYDROXIDE
  65. HUMALOG [Concomitant]
     Active Substance: INSULIN LISPRO
  66. ICAPS [Concomitant]
     Active Substance: MINERALS\VITAMINS
  67. LEVEMIR [Concomitant]
     Active Substance: INSULIN DETEMIR
  68. CLONIDINE HYDROCHLORIDE. [Concomitant]
     Active Substance: CLONIDINE HYDROCHLORIDE
  69. COUMADIN [Concomitant]
     Active Substance: WARFARIN SODIUM
  70. PROMETHAZINE [Concomitant]
     Active Substance: PROMETHAZINE HYDROCHLORIDE
  71. POLYETHYLENE GLYCOL [Concomitant]
     Active Substance: POLYETHYLENE GLYCOLS
  72. BELBUCA [Concomitant]
     Active Substance: BUPRENORPHINE HYDROCHLORIDE
  73. CARISOPRODOL. [Concomitant]
     Active Substance: CARISOPRODOL
  74. ALDACTONE [Concomitant]
     Active Substance: SPIRONOLACTONE
  75. BISACODYL. [Concomitant]
     Active Substance: BISACODYL
  76. NUBAIN [Concomitant]
     Active Substance: NALBUPHINE HYDROCHLORIDE
  77. PRAVACHOL [Concomitant]
     Active Substance: PRAVASTATIN SODIUM
  78. DESONIDE. [Concomitant]
     Active Substance: DESONIDE
  79. ZANTAC [Concomitant]
     Active Substance: RANITIDINE HYDROCHLORIDE
  80. OXYCODONE/ACETAMINOPHEN [Concomitant]
     Active Substance: ACETAMINOPHEN\OXYCODONE HYDROCHLORIDE
  81. DIAZEPAM. [Concomitant]
     Active Substance: DIAZEPAM
  82. LEVOFLOXACIN. [Concomitant]
     Active Substance: LEVOFLOXACIN
  83. DOCQLACE [Concomitant]
     Active Substance: DOCUSATE SODIUM
  84. BACLOFEN. [Concomitant]
     Active Substance: BACLOFEN
  85. LISINOPRIL?HCTZ [Concomitant]
     Active Substance: HYDROCHLOROTHIAZIDE\LISINOPRIL
  86. TROPACINE. [Concomitant]
     Active Substance: TROPACINE
  87. IRON [Concomitant]
     Active Substance: IRON
  88. PRECEDEX [Concomitant]
     Active Substance: DEXMEDETOMIDINE HYDROCHLORIDE
  89. AMMONIUM LACTATE. [Concomitant]
     Active Substance: AMMONIUM LACTATE

REACTIONS (3)
  - Acute kidney injury [Not Recovered/Not Resolved]
  - Renal failure [Unknown]
  - Chronic kidney disease [Not Recovered/Not Resolved]

NARRATIVE: CASE EVENT DATE: 201806
